FAERS Safety Report 8838120 (Version 2)
Quarter: 2015Q3

REPORT INFORMATION
  Report Type: Report from Study
  Country: US (occurrence: US)
  Receive Date: 20121012
  Receipt Date: 20150821
  Transmission Date: 20151125
  Serious: Yes (Other)
  Sender: FDA-Public Use
  Company Number: US-ROCHE-1131505

PATIENT
  Sex: Male

DRUGS (21)
  1. RITUXAN [Suspect]
     Active Substance: RITUXIMAB
     Indication: OFF LABEL USE
     Route: 042
  2. HYDROXYDAUNORUBICIN [Concomitant]
     Active Substance: DOXORUBICIN
  3. PROAMATINE [Concomitant]
     Active Substance: MIDODRINE HYDROCHLORIDE
     Route: 048
  4. DECADRON [Concomitant]
     Active Substance: DEXAMETHASONE
     Route: 042
  5. BENADRYL [Concomitant]
     Active Substance: DIPHENHYDRAMINE HYDROCHLORIDE
     Route: 042
  6. ANZEMET [Concomitant]
     Active Substance: DOLASETRON MESYLATE
     Route: 065
  7. NEUPOGEN [Concomitant]
     Active Substance: FILGRASTIM
     Route: 058
  8. TYLENOL [Concomitant]
     Active Substance: ACETAMINOPHEN
  9. LEVAQUIN [Concomitant]
     Active Substance: LEVOFLOXACIN
     Route: 048
  10. ADRIA [Concomitant]
     Route: 042
  11. PREDNISOLONE. [Concomitant]
     Active Substance: PREDNISOLONE
  12. FOLATE [Concomitant]
     Active Substance: FOLATE SODIUM
     Route: 048
  13. MAG OXIDE [Concomitant]
     Active Substance: MAGNESIUM OXIDE
     Route: 048
  14. ONCOVIN [Concomitant]
     Active Substance: VINCRISTINE SULFATE
  15. PROCRIT [Concomitant]
     Active Substance: ERYTHROPOIETIN
     Route: 058
  16. VINCRISTINE [Concomitant]
     Active Substance: VINCRISTINE
     Route: 042
  17. CYTOXAN [Concomitant]
     Active Substance: CYCLOPHOSPHAMIDE
     Route: 042
  18. SENOKOT [Concomitant]
     Active Substance: SENNOSIDES
     Route: 048
  19. RITUXAN [Suspect]
     Active Substance: RITUXIMAB
     Indication: WALDENSTROM^S MACROGLOBULINAEMIA
     Route: 042
     Dates: start: 20011101
  20. CYTOXAN [Concomitant]
     Active Substance: CYCLOPHOSPHAMIDE
     Route: 042
  21. PROCRIT [Concomitant]
     Active Substance: ERYTHROPOIETIN
     Route: 058

REACTIONS (15)
  - Fatigue [Unknown]
  - Dyspnoea [Unknown]
  - Asthenia [Unknown]
  - Dizziness [Unknown]
  - Sinus bradycardia [Unknown]
  - Hypotension [Unknown]
  - Oedema [Unknown]
  - Presyncope [Unknown]
  - Malaise [Unknown]
  - Decreased appetite [Unknown]
  - Chills [Unknown]
  - Feeling abnormal [Unknown]
  - Breath sounds abnormal [Unknown]
  - Affect lability [Unknown]
  - Depression [Unknown]
